FAERS Safety Report 6601693-0 (Version None)
Quarter: 2010Q1

REPORT INFORMATION
  Report Type: 
  Country: None (occurrence: None)
  Receive Date: 20100225
  Receipt Date: 20100217
  Transmission Date: 20100710
  Serious: Yes (Other)
  Sender: FDA-Public Use
  Company Number: US-ROCHE-686815

PATIENT
  Sex: Female

DRUGS (1)
  1. ACCUTANE [Suspect]
     Indication: ACNE
     Route: 048
     Dates: end: 20060901

REACTIONS (4)
  - DRUG INEFFECTIVE [None]
  - EATING DISORDER [None]
  - HALLUCINATION, AUDITORY [None]
  - POLYMENORRHOEA [None]
